FAERS Safety Report 5350821-6 (Version None)
Quarter: 2007Q2

REPORT INFORMATION
  Report Type: 
  Country: None (occurrence: None)
  Receive Date: 20070608
  Receipt Date: 20070601
  Transmission Date: 20071010
  Serious: Yes (Hospitalization)
  Sender: FDA-Public Use
  Company Number: US-JNJFOC-20070600990

PATIENT
  Sex: Female
  Weight: 58.97 kg

DRUGS (7)
  1. DURAGESIC-100 [Suspect]
     Indication: PAIN
     Route: 062
  2. SOMA [Concomitant]
     Indication: PAIN
     Route: 048
  3. ZANAFLEX [Concomitant]
     Indication: MUSCLE SPASMS
     Dosage: AS NEEDED
     Route: 048
  4. CYMBALTA [Concomitant]
     Indication: DEPRESSION
     Route: 048
  5. WELLBUTRIN [Concomitant]
     Indication: DEPRESSION
     Route: 048
  6. LARAZEPAM [Concomitant]
     Indication: ANXIETY
     Route: 048
  7. MORPHINE [Concomitant]
     Indication: PAIN
     Route: 048

REACTIONS (6)
  - BACK INJURY [None]
  - BRONCHITIS CHRONIC [None]
  - CONDITION AGGRAVATED [None]
  - EMPHYSEMA [None]
  - INCORRECT DRUG ADMINISTRATION DURATION [None]
  - URTICARIA [None]
